FAERS Safety Report 4270906-5 (Version None)
Quarter: 2004Q1

REPORT INFORMATION
  Report Type: 
  Country: None (occurrence: None)
  Receive Date: 20040113
  Receipt Date: 20031229
  Transmission Date: 20041129
  Serious: No
  Sender: FDA-Public Use
  Company Number: 2004AP00024

PATIENT
  Age: 50 Year
  Sex: Male

DRUGS (12)
  1. SEROQUEL [Suspect]
     Indication: SCHIZOPHRENIA, PARANOID TYPE
     Dosage: 25 MG TID PO
     Route: 048
     Dates: start: 20030808, end: 20030821
  2. LODOPIN [Suspect]
     Indication: SCHIZOPHRENIA
     Dosage: 150 MG DAILY PO
     Route: 048
     Dates: end: 20030821
  3. HALOPERIDOL [Suspect]
     Dosage: 26 MG DAILY PO
     Route: 048
     Dates: end: 20030821
  4. AKINETON [Suspect]
     Dosage: 6 MG DAILY PO
     Route: 048
     Dates: end: 20030821
  5. ARTANE [Suspect]
     Dosage: 6 MG DAILY PO
     Route: 048
     Dates: end: 20030821
  6. VEGETAMIN [Suspect]
     Dates: end: 20030821
  7. TEGRETOL [Concomitant]
  8. LEXOTAN [Concomitant]
  9. ROHYPNOL [Concomitant]
  10. ALOSENN [Concomitant]
  11. GASMOTIN [Concomitant]
  12. VAGOSTIGMIN #1 [Concomitant]

REACTIONS (1)
  - ILEUS [None]
